FAERS Safety Report 13669044 (Version 3)
Quarter: 2017Q3

REPORT INFORMATION
  Report Type: Report from Study
  Country: JP (occurrence: JP)
  Receive Date: 20170620
  Receipt Date: 20170905
  Transmission Date: 20171127
  Serious: Yes (Hospitalization, Other)
  Sender: FDA-Public Use
  Company Number: JP-ASTRAZENECA-2017SE64140

PATIENT
  Age: 71 Year
  Sex: Female
  Weight: 48 kg

DRUGS (6)
  1. PREDONINE [Suspect]
     Active Substance: PREDNISOLONE
     Indication: ORGANISING PNEUMONIA
     Dosage: 5 MG NUMBER OF SEPARATE DOSAGES UNKNOWN
     Route: 065
     Dates: start: 20160219
  2. TAGRISSO [Suspect]
     Active Substance: OSIMERTINIB
     Indication: NON-SMALL CELL LUNG CANCER
     Route: 048
     Dates: start: 20170719, end: 20170721
  3. TAGRISSO [Suspect]
     Active Substance: OSIMERTINIB
     Indication: NON-SMALL CELL LUNG CANCER
     Route: 048
     Dates: start: 20170726, end: 20170728
  4. LOXOPROFEN [Suspect]
     Active Substance: LOXOPROFEN
     Indication: CANCER PAIN
     Dosage: 180 MG NUMBER OF SEPARATE DOSAGES UNKNOWN
     Route: 048
     Dates: start: 20170102, end: 20170417
  5. TAGRISSO [Suspect]
     Active Substance: OSIMERTINIB
     Indication: NON-SMALL CELL LUNG CANCER
     Route: 048
     Dates: start: 20170202, end: 20170416
  6. TAGRISSO [Suspect]
     Active Substance: OSIMERTINIB
     Indication: NON-SMALL CELL LUNG CANCER
     Route: 048
     Dates: start: 20170426, end: 20170611

REACTIONS (6)
  - Oxygen saturation decreased [Recovering/Resolving]
  - Eyelid oedema [Recovering/Resolving]
  - Palpitations [Recovered/Resolved]
  - Renal impairment [Recovered/Resolved]
  - Malaise [Recovering/Resolving]
  - Dyspnoea [Recovering/Resolving]

NARRATIVE: CASE EVENT DATE: 20170210
